FAERS Safety Report 9796335 (Version 3)
Quarter: 2014Q2

REPORT INFORMATION
  Report Type: Spontaneous
  Country: US (occurrence: US)
  Receive Date: 20140103
  Receipt Date: 20140425
  Transmission Date: 20141212
  Serious: Yes (Hospitalization)
  Sender: FDA-Public Use
  Company Number: US-B.I. PHARMACEUTICALS,INC./RIDGEFIELD-2014-BI-00059BI

PATIENT
  Age: 82 Year
  Sex: Male

DRUGS (16)
  1. PRADAXA [Suspect]
     Indication: ATRIAL FIBRILLATION
     Dosage: 300 MG
     Route: 065
     Dates: start: 20110803, end: 20110813
  2. LASIX [Concomitant]
     Route: 065
     Dates: start: 2000, end: 2012
  3. METOPROLOL [Concomitant]
     Route: 065
     Dates: start: 2000, end: 2012
  4. METFORMIN [Concomitant]
     Route: 065
     Dates: start: 2000, end: 2012
  5. LISINOPRIL [Concomitant]
     Route: 065
     Dates: start: 2000, end: 2012
  6. KLOR-CON [Concomitant]
     Route: 065
     Dates: start: 2000, end: 2012
  7. LYRICA [Concomitant]
     Route: 065
     Dates: start: 2000, end: 2012
  8. RANEXA [Concomitant]
     Route: 065
     Dates: start: 2000, end: 2012
  9. TORSEMIDE [Concomitant]
     Route: 065
     Dates: start: 2000, end: 2012
  10. CARVEDILOL [Concomitant]
     Route: 065
     Dates: start: 2000, end: 2012
  11. ACYCLOVIR [Concomitant]
     Route: 065
  12. SPIRONOLACTONE [Concomitant]
     Route: 065
  13. LIDOCAINE [Concomitant]
     Route: 065
  14. FOLIC ACID [Concomitant]
     Route: 065
  15. ASA [Concomitant]
     Route: 065
  16. ZAROXOLYN [Concomitant]
     Route: 065

REACTIONS (7)
  - Lower gastrointestinal haemorrhage [Recovered/Resolved]
  - Shock haemorrhagic [Unknown]
  - Haemorrhagic anaemia [Unknown]
  - Haematuria [Unknown]
  - Coagulopathy [Unknown]
  - Cardio-respiratory arrest [Unknown]
  - Renal failure acute [Unknown]
